FAERS Safety Report 8646738 (Version 3)
Quarter: 2012Q4

REPORT INFORMATION
  Report Type: 
  Country: US (occurrence: US)
  Receive Date: 20120703
  Receipt Date: 20121218
  Transmission Date: 20130627
  Serious: No
  Sender: FDA-Public Use
  Company Number: US-BIOGENIDEC-2012BI022624

PATIENT
  Age: 57 Year
  Sex: Male

DRUGS (1)
  1. AVONEX [Suspect]
     Indication: MULTIPLE SCLEROSIS
     Route: 030
     Dates: start: 20120501, end: 201207

REACTIONS (9)
  - Contusion [Recovered/Resolved]
  - Feeling drunk [Recovered/Resolved]
  - Fear [Not Recovered/Not Resolved]
  - Hallucinations, mixed [Recovered/Resolved]
  - Burning sensation [Unknown]
  - Pain in extremity [Not Recovered/Not Resolved]
  - Influenza like illness [Recovered/Resolved]
  - Paraesthesia [Unknown]
  - Musculoskeletal stiffness [Recovered/Resolved]
